FAERS Safety Report 9938132 (Version 2)
Quarter: 2014Q1

REPORT INFORMATION
  Report Type: Spontaneous
  Country: AT (occurrence: AT)
  Receive Date: 20140303
  Receipt Date: 20140307
  Transmission Date: 20141002
  Serious: Yes (Hospitalization)
  Sender: FDA-Public Use
  Company Number: AT-ROCHE-1357983

PATIENT
  Age: 48 Year
  Sex: Female

DRUGS (1)
  1. MABTHERA [Suspect]
     Indication: RHEUMATOID ARTHRITIS
     Dosage: 500MG (10MG/ML) CONCENTRATE FOR SOLUTION FOR INFUSION
     Route: 042
     Dates: start: 201109, end: 201310

REACTIONS (1)
  - Stress cardiomyopathy [Unknown]
